FAERS Safety Report 4344318-X (Version None)
Quarter: 2004Q2

REPORT INFORMATION
  Report Type: 
  Country: None (occurrence: None)
  Receive Date: 20040419
  Receipt Date: 20040406
  Transmission Date: 20050107
  Serious: Yes (Hospitalization)
  Sender: FDA-Public Use
  Company Number: 2004207847DE

PATIENT
  Sex: Female

DRUGS (2)
  1. MEDROXYPROGESTERONE ACETATE [Suspect]
     Dosage: ORAL
     Route: 048
  2. ESTRADERM [Concomitant]

REACTIONS (2)
  - HAEMATOCRIT INCREASED [None]
  - PULMONARY FUNCTION TEST ABNORMAL [None]
